FAERS Safety Report 9399714 (Version 1)
Quarter: 2013Q3

REPORT INFORMATION
  Report Type: Spontaneous
  Country: US (occurrence: US)
  Receive Date: 20130715
  Receipt Date: 20130715
  Transmission Date: 20140515
  Serious: Yes (Hospitalization)
  Sender: FDA-Public Use
  Company Number: US-JNJFOC-20130702716

PATIENT
  Age: 79 Year
  Sex: Male
  Weight: 97.3 kg

DRUGS (4)
  1. ZYTIGA [Suspect]
     Indication: PROSTATE CANCER METASTATIC
     Route: 048
     Dates: start: 201304, end: 201306
  2. PREDNISONE [Suspect]
     Indication: PROSTATE CANCER METASTATIC
     Route: 065
  3. INSULIN [Concomitant]
     Indication: DIABETES MELLITUS
     Route: 065
  4. BACTRIM [Concomitant]
     Indication: ANTIFUNGAL PROPHYLAXIS
     Route: 065
     Dates: start: 20130703

REACTIONS (2)
  - Respiratory disorder [Not Recovered/Not Resolved]
  - Tachycardia [Not Recovered/Not Resolved]
